FAERS Safety Report 7161694-3 (Version None)
Quarter: 2010Q4

REPORT INFORMATION
  Report Type: 
  Country: None (occurrence: None)
  Receive Date: 20101215
  Receipt Date: 20101209
  Transmission Date: 20110411
  Serious: Yes (Death, Hospitalization)
  Sender: FDA-Public Use
  Company Number: JP-PFIZER INC-2010132702

PATIENT
  Age: 58 Year
  Sex: Male
  Weight: 60.2 kg

DRUGS (2)
  1. SUTENT [Suspect]
     Indication: RENAL CELL CARCINOMA
     Dosage: 25 MG, 1X/DAY
     Route: 048
     Dates: start: 20100513, end: 20101006
  2. HUMULIN R [Concomitant]
     Indication: DIABETES MELLITUS
     Dosage: 8 UNITS, 3X/DAY
     Route: 058
     Dates: start: 20040801, end: 20041010

REACTIONS (2)
  - NECROTISING SCLERITIS [None]
  - RHABDOMYOLYSIS [None]
